FAERS Safety Report 20765197 (Version 4)
Quarter: 2022Q3

REPORT INFORMATION
  Report Type: Spontaneous
  Country: US (occurrence: US)
  Receive Date: 20220428
  Receipt Date: 20220920
  Transmission Date: 20221027
  Serious: Yes (Life-Threatening, Hospitalization, Other)
  Sender: FDA-Public Use
  Company Number: US-PFIZER INC-202200625415

PATIENT
  Age: 49 Year
  Sex: Female
  Weight: 113.38 kg

DRUGS (1)
  1. XANAX [Suspect]
     Active Substance: ALPRAZOLAM
     Indication: Anxiety
     Dosage: 1 MG, 3X/DAY
     Dates: start: 2013

REACTIONS (4)
  - Dysphagia [Not Recovered/Not Resolved]
  - Abdominal pain upper [Unknown]
  - Alopecia [Unknown]
  - Malnutrition [Unknown]

NARRATIVE: CASE EVENT DATE: 20170601
